FAERS Safety Report 9168566 (Version 1)
Quarter: 2013Q1

REPORT INFORMATION
  Report Type: Spontaneous
  Country: IT (occurrence: None)
  Receive Date: 20130307
  Receipt Date: 20130307
  Transmission Date: 20140127
  Serious: Yes (Other)
  Sender: FDA-Public Use
  Company Number: 2013-03216

PATIENT
  Age: 68 Year
  Sex: Female

DRUGS (6)
  1. CITALOPRAM (UNKNOWN) (CITALOPRAM) UNK, UNKUNK [Suspect]
     Indication: DRUG ADMINISTRATION ERROR
     Dosage: OVERDOSE  WITH W600 MG TOTAL
     Route: 048
     Dates: start: 20120814, end: 20120814
  2. LANSOX (LANSOPRAZOLE) , 15 MG [Concomitant]
  3. ZYLORIC (ALLOPURINOL) , 300 MG [Concomitant]
  4. MOVICOL [Concomitant]
  5. EXOCIN (OFLOXACIN) , 3 MG/ML [Concomitant]
  6. MUSCORIL (THIOCOLCHICOSIDE) , 4 MG [Concomitant]

REACTIONS (5)
  - Muscle rigidity [None]
  - Nausea [None]
  - Somnolence [None]
  - Overdose [None]
  - Wrong drug administered [None]
